FAERS Safety Report 8533272 (Version 2)
Quarter: 2013Q1

REPORT INFORMATION
  Report Type: Spontaneous
  Country: US (occurrence: US)
  Receive Date: 20120427
  Receipt Date: 20130124
  Transmission Date: 20140127
  Serious: Yes (Hospitalization)
  Sender: FDA-Public Use
  Company Number: US-BAYER-2012-039755

PATIENT
  Age: 46 Year
  Sex: Female
  Weight: 86 kg

DRUGS (4)
  1. YAZ [Suspect]
     Indication: CONTRACEPTION
     Dosage: UNK
     Dates: start: 20070617, end: 20070704
  2. YAZ [Suspect]
     Indication: PREMENSTRUAL SYNDROME
  3. IBUPROFEN [Concomitant]
     Indication: DYSMENORRHOEA
     Dosage: 2 TABS PER DAY
     Dates: start: 200707
  4. TYLENOL [Concomitant]
     Indication: PAIN
     Dosage: 650 MG, EVERY 6 HOURS AS NEEDED
     Route: 048

REACTIONS (7)
  - Pulmonary embolism [None]
  - Dyspnoea [None]
  - Deep vein thrombosis [None]
  - Pain in extremity [None]
  - Injury [None]
  - Pain [None]
  - Emotional distress [None]
